FAERS Safety Report 7400167-7 (Version None)
Quarter: 2011Q2

REPORT INFORMATION
  Report Type: 
  Country: None (occurrence: None)
  Receive Date: 20110407
  Receipt Date: 20110324
  Transmission Date: 20111010
  Serious: Yes (Disabling, Other)
  Sender: FDA-Public Use
  Company Number: PHHY2011ZA25039

PATIENT
  Sex: Female

DRUGS (3)
  1. ACLASTA [Suspect]
     Dosage: 5 MG/100 ML
     Route: 042
     Dates: start: 20100101
  2. ACLASTA [Suspect]
     Dosage: UNK
  3. ACLASTA [Suspect]
     Dosage: 5 MG/100 ML
     Route: 042
     Dates: start: 20110301

REACTIONS (5)
  - EPICONDYLITIS [None]
  - PAIN IN EXTREMITY [None]
  - DIZZINESS [None]
  - ABASIA [None]
  - ARTHRALGIA [None]
